FAERS Safety Report 4485529-2 (Version None)
Quarter: 2004Q4

REPORT INFORMATION
  Report Type: 
  Country: None (occurrence: None)
  Receive Date: 20041021
  Receipt Date: 20041005
  Transmission Date: 20050328
  Serious: Yes (Other)
  Sender: FDA-Public Use
  Company Number: 8007578

PATIENT
  Age: 99 Year
  Sex: Female

DRUGS (2)
  1. KEPPRA [Suspect]
     Indication: CONVULSION
     Dosage: 500 MG 2/D
  2. NEURONTIN [Suspect]
     Indication: CONVULSION

REACTIONS (6)
  - ASTHENIA [None]
  - COORDINATION ABNORMAL [None]
  - DYSPNOEA [None]
  - DYSSTASIA [None]
  - FEELING ABNORMAL [None]
  - MEDICATION ERROR [None]
